FAERS Safety Report 7297038-6 (Version None)
Quarter: 2011Q1

REPORT INFORMATION
  Report Type: 
  Country: None (occurrence: None)
  Receive Date: 20110216
  Receipt Date: 20110210
  Transmission Date: 20110831
  Serious: Yes (Other)
  Sender: FDA-Public Use
  Company Number: US-JNJFOC-20110204216

PATIENT
  Sex: Male

DRUGS (3)
  1. INVEGA SUSTENNA [Suspect]
     Indication: SCHIZOPHRENIA
     Route: 030
  2. PROZAC [Concomitant]
     Indication: DEPRESSION
     Route: 048
  3. UNKNOWN MEDICATION [Concomitant]
     Route: 065

REACTIONS (1)
  - DEAFNESS [None]
